FAERS Safety Report 23242075 (Version 1)
Quarter: 2023Q4

REPORT INFORMATION
  Report Type: Spontaneous
  Country: US (occurrence: US)
  Receive Date: 20231129
  Receipt Date: 20231129
  Transmission Date: 20240110
  Serious: Yes (Other)
  Sender: FDA-Public Use
  Company Number: US-IGSA-BIG0026593

PATIENT
  Age: 70 Year
  Sex: Female

DRUGS (5)
  1. HUMAN IMMUNOGLOBULIN G [Suspect]
     Active Substance: HUMAN IMMUNOGLOBULIN G
     Indication: Epstein-Barr viraemia
     Dosage: 500 MILLIGRAM/KILOGRAM, UNKNOWN
     Route: 042
  2. HUMAN IMMUNOGLOBULIN G [Suspect]
     Active Substance: HUMAN IMMUNOGLOBULIN G
     Indication: Off label use
  3. TACROLIMUS [Concomitant]
     Active Substance: TACROLIMUS
     Indication: Immunosuppression
  4. MYCOPHENOLIC ACID [Concomitant]
     Active Substance: MYCOPHENOLIC ACID
     Indication: Immunosuppression
  5. PREDNISONE [Concomitant]
     Active Substance: PREDNISONE
     Indication: Immunosuppression
     Dosage: 2.5 MILLIGRAM, QD

REACTIONS (3)
  - Myalgia [Unknown]
  - Hypertransaminasaemia [Unknown]
  - Haemolytic anaemia [Unknown]
